FAERS Safety Report 17476212 (Version 1)
Quarter: 2020Q1

REPORT INFORMATION
  Report Type: Report from Study
  Country: MX (occurrence: MX)
  Receive Date: 20200228
  Receipt Date: 20200228
  Transmission Date: 20200409
  Serious: Yes (Hospitalization)
  Sender: FDA-Public Use
  Company Number: MX-JNJFOC-20190939858

PATIENT
  Age: 75 Year
  Sex: Female
  Weight: 88 kg

DRUGS (1)
  1. SIMPONI [Suspect]
     Active Substance: GOLIMUMAB
     Indication: RHEUMATOID ARTHRITIS
     Route: 058

REACTIONS (4)
  - Muscle spasms [Unknown]
  - Bronchitis [Unknown]
  - Cardiomegaly [Unknown]
  - Pain [Unknown]

NARRATIVE: CASE EVENT DATE: 201909
